FAERS Safety Report 7068505-5 (Version None)
Quarter: 2010Q4

REPORT INFORMATION
  Report Type: 
  Country: None (occurrence: None)
  Receive Date: 20101028
  Receipt Date: 20101019
  Transmission Date: 20110411
  Serious: Yes (Other)
  Sender: FDA-Public Use
  Company Number: ZA-B.I. PHARMACEUTICALS,INC./RIDGEFIELD-2010-ZA-00168ZA

PATIENT
  Age: 85 Year
  Sex: Female

DRUGS (1)
  1. PRADAXA 110MG [Suspect]
     Indication: KNEE OPERATION
     Dosage: 220 MG
     Route: 048

REACTIONS (1)
  - DEEP VEIN THROMBOSIS [None]
